FAERS Safety Report 24112260 (Version 1)
Quarter: 2024Q3

REPORT INFORMATION
  Report Type: Report from Study
  Country: GB (occurrence: None)
  Receive Date: 20240719
  Receipt Date: 20240719
  Transmission Date: 20241017
  Serious: Yes (Disabling, Other)
  Sender: ASTRAZENECA
  Company Number: 2020SE83874

PATIENT
  Sex: Female

DRUGS (1)
  1. FASENRA [Suspect]
     Active Substance: BENRALIZUMAB
     Dosage: 30.0MG UNKNOWN
     Route: 058

REACTIONS (6)
  - Fall [Unknown]
  - Stress fracture [Unknown]
  - Chest injury [Unknown]
  - Dyspnoea [Unknown]
  - Pain [Unknown]
  - Wheezing [Unknown]
